FAERS Safety Report 23305904 (Version 2)
Quarter: 2023Q4

REPORT INFORMATION
  Report Type: Report from Study
  Country: JP (occurrence: JP)
  Receive Date: 20231218
  Receipt Date: 20231222
  Transmission Date: 20240110
  Serious: Yes (Hospitalization)
  Sender: FDA-Public Use
  Company Number: JP-JNJFOC-20231233637

PATIENT

DRUGS (2)
  1. STELARA [Suspect]
     Active Substance: USTEKINUMAB
     Indication: Crohn^s disease
     Dosage: DOSE UNKNOWN
     Route: 040
  2. STELARA [Suspect]
     Active Substance: USTEKINUMAB
     Dosage: DOSE UNKNOWN?USTEKINUMAB (GENETICAL RECOMBINATION):45MG
     Route: 058

REACTIONS (1)
  - Adverse event [Unknown]
